FAERS Safety Report 24603807 (Version 3)
Quarter: 2024Q4

REPORT INFORMATION
  Report Type: Spontaneous
  Country: US (occurrence: US)
  Receive Date: 20241111
  Receipt Date: 20241126
  Transmission Date: 20250114
  Serious: No
  Sender: CALLIDITAS THERAPEUTICS AB
  Company Number: US-Calliditas-2024CAL02467

PATIENT
  Age: 54 Year
  Sex: Female

DRUGS (18)
  1. TARPEYO [Suspect]
     Active Substance: BUDESONIDE
     Indication: IgA nephropathy
     Route: 048
     Dates: start: 20240822, end: 20241003
  2. FOLIC ACID [Concomitant]
     Active Substance: FOLIC ACID
  3. ONDANSETRON [Concomitant]
     Active Substance: ONDANSETRON
  4. FLONASE [Concomitant]
     Active Substance: FLUTICASONE PROPIONATE
  5. ATIVAN [Concomitant]
     Active Substance: LORAZEPAM
  6. SUCRALFATE [Concomitant]
     Active Substance: SUCRALFATE
  7. OMEPRAZOLE [Concomitant]
     Active Substance: OMEPRAZOLE
  8. LOPRESSOR [Concomitant]
     Active Substance: METOPROLOL TARTRATE
  9. LISINOPRIL [Concomitant]
     Active Substance: LISINOPRIL
  10. METHADONE [Concomitant]
     Active Substance: METHADONE HYDROCHLORIDE
  11. NORVASC [Concomitant]
     Active Substance: AMLODIPINE BESYLATE
  12. ATARAX [Concomitant]
     Active Substance: HYDROXYZINE HYDROCHLORIDE
  13. VITAMIN B12 [Concomitant]
     Active Substance: CYANOCOBALAMIN
  14. BUMEX [Concomitant]
     Active Substance: BUMETANIDE
  15. BUSPAR [Concomitant]
     Active Substance: BUSPIRONE HYDROCHLORIDE
  16. SODIUM CHLORIDE [Concomitant]
     Active Substance: SODIUM CHLORIDE
  17. SYNTHROID [Concomitant]
     Active Substance: LEVOTHYROXINE SODIUM
  18. NORCO [Concomitant]
     Active Substance: ACETAMINOPHEN\HYDROCODONE BITARTRATE

REACTIONS (7)
  - Contusion [Unknown]
  - Swelling [Recovering/Resolving]
  - Face oedema [Recovering/Resolving]
  - Arthralgia [Unknown]
  - Petechiae [Unknown]
  - Pain in extremity [Unknown]
  - Fatigue [Unknown]

NARRATIVE: CASE EVENT DATE: 20241003
